FAERS Safety Report 6469381-1 (Version None)
Quarter: 2009Q4

REPORT INFORMATION
  Report Type: 
  Country: None (occurrence: None)
  Receive Date: 20091203
  Receipt Date: 20091127
  Transmission Date: 20100525
  Serious: Yes (Death, Hospitalization)
  Sender: FDA-Public Use
  Company Number: DE-ELI_LILLY_AND_COMPANY-DE200911007094

PATIENT
  Age: 70 Year
  Sex: Male

DRUGS (2)
  1. ALIMTA [Suspect]
     Indication: NON-SMALL CELL LUNG CANCER
     Route: 042
  2. CARBOPLATIN [Concomitant]
     Indication: NON-SMALL CELL LUNG CANCER

REACTIONS (4)
  - ASTHENIA [None]
  - DEATH [None]
  - DEPRESSION [None]
  - FATIGUE [None]
